FAERS Safety Report 4731875-4 (Version None)
Quarter: 2005Q3

REPORT INFORMATION
  Report Type: 
  Country: None (occurrence: None)
  Receive Date: 20050725
  Receipt Date: 20041122
  Transmission Date: 20060218
  Serious: Yes (Disabling)
  Sender: FDA-Public Use
  Company Number: WAES 0411USA03575

PATIENT
  Age: 58 Year
  Sex: Female

DRUGS (5)
  1. VIOXX [Suspect]
     Indication: ARTHRITIS
     Dosage: UNK/UNK/PO
     Route: 048
     Dates: start: 20000101, end: 20040930
  2. GLUCOPHAGE [Concomitant]
  3. NORVASC [Concomitant]
  4. POTASSIUM (UNSPECIFIED) [Concomitant]
  5. VITAMINS (UNSPECIFIED) [Concomitant]

REACTIONS (1)
  - OEDEMA PERIPHERAL [None]
